FAERS Safety Report 19087028 (Version 4)
Quarter: 2022Q3

REPORT INFORMATION
  Report Type: Spontaneous
  Country: US (occurrence: None)
  Receive Date: 20210402
  Receipt Date: 20220714
  Transmission Date: 20221027
  Serious: Yes (Other)
  Sender: FDA-Public Use
  Company Number: 2021A208574

PATIENT
  Age: 60 Year
  Sex: Male
  Weight: 76.7 kg

DRUGS (45)
  1. PRILOSEC [Suspect]
     Active Substance: OMEPRAZOLE MAGNESIUM
     Route: 048
     Dates: start: 1996, end: 2016
  2. NEXIUM [Suspect]
     Active Substance: ESOMEPRAZOLE MAGNESIUM
     Indication: Gastrooesophageal reflux disease
     Route: 048
     Dates: start: 1996, end: 2016
  3. NEXIUM [Suspect]
     Active Substance: ESOMEPRAZOLE MAGNESIUM
     Indication: Gastrooesophageal reflux disease
     Route: 048
     Dates: start: 2001, end: 2017
  4. PROTONIX [Suspect]
     Active Substance: PANTOPRAZOLE SODIUM
     Indication: Gastrooesophageal reflux disease
     Route: 065
     Dates: start: 1996, end: 2016
  5. PROTONIX [Suspect]
     Active Substance: PANTOPRAZOLE SODIUM
     Indication: Gastrooesophageal reflux disease
     Route: 065
     Dates: start: 2000, end: 2017
  6. PROTONIX [Suspect]
     Active Substance: PANTOPRAZOLE SODIUM
     Indication: Gastrooesophageal reflux disease
     Dosage: GENERIC
     Route: 065
  7. LISINOPRIL [Concomitant]
     Active Substance: LISINOPRIL
     Indication: Hypertension
     Route: 065
     Dates: start: 20180917, end: 20190306
  8. AMOXICILLIN TRIHYDRATE/LEVOFLOXACIN/ESOMEPRAZOLE MAGNESIUM [Concomitant]
     Indication: Antibiotic therapy
     Route: 065
     Dates: start: 20181107, end: 20181107
  9. FUROSEMIDE [Concomitant]
     Active Substance: FUROSEMIDE
     Indication: Cardiac disorder
     Route: 065
     Dates: start: 20181107
  10. LOSARTAN [Concomitant]
     Active Substance: LOSARTAN
     Indication: Hypertension
     Route: 065
     Dates: start: 20170515
  11. ASPIRIN [Concomitant]
     Active Substance: ASPIRIN
     Indication: Cardiac disorder
     Route: 065
  12. NAPROXEN [Concomitant]
     Active Substance: NAPROXEN
     Indication: Inflammation
     Route: 065
  13. ZANTAC [Concomitant]
     Active Substance: RANITIDINE HYDROCHLORIDE
     Indication: Inflammation
     Route: 065
  14. TUMS [Concomitant]
     Active Substance: CALCIUM CARBONATE
  15. PEPTO-BISMOL [Concomitant]
     Active Substance: BISMUTH SUBSALICYLATE
  16. CARVEDILOL [Concomitant]
     Active Substance: CARVEDILOL
  17. PREDNISONE [Concomitant]
     Active Substance: PREDNISONE
  18. LINZESS [Concomitant]
     Active Substance: LINACLOTIDE
  19. BRILINTA [Concomitant]
     Active Substance: TICAGRELOR
  20. FLOVENT [Concomitant]
     Active Substance: FLUTICASONE PROPIONATE
  21. CHOLINE/OXITRIPTAN/THEOBROMA CACAO/GLUTAMIC ACID/TRAZODONE/VITIS VINIF [Concomitant]
  22. NITROSTAT [Concomitant]
     Active Substance: NITROGLYCERIN
  23. BACLOFEN [Concomitant]
     Active Substance: BACLOFEN
  24. CHLORTHALIDONE [Concomitant]
     Active Substance: CHLORTHALIDONE
  25. ATENOLOL [Concomitant]
     Active Substance: ATENOLOL
  26. CLOPIDOGREL [Concomitant]
     Active Substance: CLOPIDOGREL BISULFATE
  27. IBUPROFEN [Concomitant]
     Active Substance: IBUPROFEN
  28. MORPHINE [Concomitant]
     Active Substance: MORPHINE
  29. LIPITOR [Concomitant]
     Active Substance: ATORVASTATIN CALCIUM
  30. NORTRIPTYLINE [Concomitant]
     Active Substance: NORTRIPTYLINE
  31. AMLODIPINE [Concomitant]
     Active Substance: AMLODIPINE BESYLATE
  32. ATORVASTATIN [Concomitant]
     Active Substance: ATORVASTATIN
  33. POLYETHYLENE GLYCOL [Concomitant]
     Active Substance: POLYETHYLENE GLYCOL
  34. POTASSIUM CHLORIDE [Concomitant]
     Active Substance: POTASSIUM CHLORIDE
  35. NITROGLYCERIN [Concomitant]
     Active Substance: NITROGLYCERIN
  36. LEVAQUIN [Concomitant]
     Active Substance: LEVOFLOXACIN
  37. FLUTICASONE [Concomitant]
     Active Substance: FLUTICASONE
  38. GABAPENTIN [Concomitant]
     Active Substance: GABAPENTIN
  39. METOPROLOL [Concomitant]
     Active Substance: METOPROLOL
  40. PLAVIX [Concomitant]
     Active Substance: CLOPIDOGREL BISULFATE
  41. NEURONTIN [Concomitant]
     Active Substance: GABAPENTIN
  42. TICAGRELOR [Concomitant]
     Active Substance: TICAGRELOR
  43. COREG [Concomitant]
     Active Substance: CARVEDILOL
  44. HYZAAR [Concomitant]
     Active Substance: HYDROCHLOROTHIAZIDE\LOSARTAN POTASSIUM
  45. OXYCODONE [Concomitant]
     Active Substance: OXYCODONE

REACTIONS (4)
  - Acute kidney injury [Not Recovered/Not Resolved]
  - Chronic kidney disease [Unknown]
  - Renal failure [Unknown]
  - Gastrooesophageal reflux disease [Not Recovered/Not Resolved]

NARRATIVE: CASE EVENT DATE: 20160101
